FAERS Safety Report 4642282-7 (Version None)
Quarter: 2005Q2

REPORT INFORMATION
  Report Type: 
  Country: None (occurrence: None)
  Receive Date: 20050422
  Receipt Date: 20050412
  Transmission Date: 20051028
  Serious: Yes (Hospitalization)
  Sender: FDA-Public Use
  Company Number: AR-BRISTOL-MYERS SQUIBB COMPANY-12940268

PATIENT
  Age: 46 Year
  Sex: Female

DRUGS (2)
  1. CETUXIMAB [Suspect]
     Indication: COLORECTAL CANCER METASTATIC
     Dosage: MOST RECENT TX: 05-APR-05/PT HAD REC'D 6 INFUSIONS TO DATE/DRUG DELAYED ON 11-APR-05/THEN REDUCED.
     Route: 041
     Dates: start: 20050301
  2. IRINOTECAN HCL [Suspect]
     Indication: COLORECTAL CANCER METASTATIC
     Dosage: MOST RECENT TX: 29-MAR-05/PT HAD REC'D 3 INFUSIONS TO DATE/DRUG DELAYED ON 11-APR-05/THEN REDUCED.
     Route: 042
     Dates: start: 20050301

REACTIONS (1)
  - DEEP VEIN THROMBOSIS [None]
